FAERS Safety Report 7134920 (Version 64)
Quarter: 2016Q2

REPORT INFORMATION
  Report Type: Report from Study
  Country: CA (occurrence: CA)
  Receive Date: 20090930
  Receipt Date: 20160629
  Transmission Date: 20160815
  Serious: Yes (Life-Threatening, Hospitalization, Other)
  Sender: FDA-Public Use
  Company Number: PHHY2009CA40915

PATIENT
  Age: 55 Year
  Sex: Female

DRUGS (10)
  1. SANDOSTATIN LAR DEPOT [Suspect]
     Active Substance: OCTREOTIDE ACETATE
     Dosage: 30 MG, QMO (EVERY 4 WEEKS)
     Route: 030
  2. SANDOSTATIN LAR DEPOT [Suspect]
     Active Substance: OCTREOTIDE ACETATE
     Indication: METASTATIC CARCINOID TUMOUR
     Dosage: 30 MG, QMO (EVERY 4 WEEKS)
     Route: 030
     Dates: start: 20090723, end: 20091210
  3. SANDOSTATIN LAR DEPOT [Suspect]
     Active Substance: OCTREOTIDE ACETATE
     Dosage: 30 MG, QMO (EVERY 4 WEEKS)
     Route: 030
  4. SANDOSTATIN LAR DEPOT [Suspect]
     Active Substance: OCTREOTIDE ACETATE
     Dosage: 30 MG, QMO (EVERY 4 WEEKS)
     Route: 030
     Dates: end: 20141201
  5. PROZAC [Concomitant]
     Active Substance: FLUOXETINE HYDROCHLORIDE
     Indication: PRODUCT USED FOR UNKNOWN INDICATION
     Dosage: 40 MG, QD (FOR 20 YEARS)
     Route: 065
  6. EFFEXOR [Concomitant]
     Active Substance: VENLAFAXINE HYDROCHLORIDE
     Indication: PRODUCT USED FOR UNKNOWN INDICATION
     Dosage: 187.5 MG, QD (3 TO 4 YEARS)
     Route: 065
  7. SANDOSTATIN LAR DEPOT [Suspect]
     Active Substance: OCTREOTIDE ACETATE
     Indication: CARCINOID SYNDROME
     Dosage: 30 MG, QMO (EVERY 4 WEEKS)
     Route: 030
  8. SANDOSTATIN LAR DEPOT [Suspect]
     Active Substance: OCTREOTIDE ACETATE
     Dosage: 40 MG, QMO (EVERY 4 WEEKS)
     Route: 030
  9. SANDOSTATIN LAR DEPOT [Suspect]
     Active Substance: OCTREOTIDE ACETATE
     Dosage: 30 MG, QMO
     Route: 030
  10. ENOXAPARIN [Concomitant]
     Active Substance: ENOXAPARIN
     Indication: PRODUCT USED FOR UNKNOWN INDICATION
     Dosage: 40 MG, QD FOR 28 DAYS
     Route: 065

REACTIONS (39)
  - Chest pain [Unknown]
  - Pneumonia [Unknown]
  - Cough [Recovering/Resolving]
  - Rhinorrhoea [Unknown]
  - Arthralgia [Unknown]
  - Pulmonary mass [Unknown]
  - Chest discomfort [Not Recovered/Not Resolved]
  - Thrombosis [Unknown]
  - Stress [Unknown]
  - Dizziness [Recovered/Resolved]
  - Heart rate increased [Unknown]
  - Suicide attempt [Unknown]
  - Pulmonary embolism [Unknown]
  - Breath sounds abnormal [Recovered/Resolved]
  - Visual impairment [Recovered/Resolved]
  - Flatulence [Unknown]
  - Incision site pain [Recovering/Resolving]
  - Joint stiffness [Recovering/Resolving]
  - Blood pressure diastolic increased [Unknown]
  - Dyspnoea [Not Recovered/Not Resolved]
  - Pulmonary congestion [Unknown]
  - Blood pressure systolic decreased [Unknown]
  - Blood pressure increased [Unknown]
  - Anxiety [Unknown]
  - Faeces hard [Unknown]
  - Vitreous floaters [Unknown]
  - Lung infection [Unknown]
  - Diarrhoea [Not Recovered/Not Resolved]
  - Cholelithiasis [Recovering/Resolving]
  - Flushing [Unknown]
  - Blood pressure inadequately controlled [Unknown]
  - Nasopharyngitis [Unknown]
  - Headache [Recovered/Resolved]
  - Lymphadenopathy [Unknown]
  - Head discomfort [Unknown]
  - Nausea [Recovered/Resolved]
  - Memory impairment [Unknown]
  - Musculoskeletal stiffness [Recovering/Resolving]
  - Full blood count increased [Unknown]

NARRATIVE: CASE EVENT DATE: 201001
